FAERS Safety Report 10977615 (Version 2)
Quarter: 2015Q2

REPORT INFORMATION
  Report Type: Spontaneous
  Country: JP (occurrence: JP)
  Receive Date: 20150402
  Receipt Date: 20150416
  Transmission Date: 20150821
  Serious: Yes (Hospitalization, Other)
  Sender: FDA-Public Use
  Company Number: JP-ASTRAZENECA-2015SE18189

PATIENT
  Age: 32207 Day
  Sex: Female
  Weight: 42 kg

DRUGS (8)
  1. CALBLOCK [Suspect]
     Active Substance: AZELNIDIPINE
     Route: 048
     Dates: start: 20111014
  2. MAGMITT [Suspect]
     Active Substance: MAGNESIUM OXIDE
     Route: 048
     Dates: start: 20111210
  3. CELECOX [Suspect]
     Active Substance: CELECOXIB
     Route: 048
     Dates: start: 20120815, end: 20150216
  4. LIPITOR [Suspect]
     Active Substance: ATORVASTATIN CALCIUM
     Route: 048
     Dates: start: 20100814
  5. NEXIUM [Suspect]
     Active Substance: ESOMEPRAZOLE MAGNESIUM
     Indication: GASTRIC ULCER
     Route: 048
     Dates: start: 20141001, end: 20150216
  6. OPALMON [Suspect]
     Active Substance: LIMAPROST
     Route: 048
     Dates: start: 20120815, end: 20150216
  7. RASILEZ [Suspect]
     Active Substance: ALISKIREN
     Route: 048
     Dates: start: 20110215
  8. HYPEN [Suspect]
     Active Substance: ETODOLAC
     Route: 048
     Dates: start: 20120815, end: 20150216

REACTIONS (2)
  - Femur fracture [Unknown]
  - Rash [Recovering/Resolving]

NARRATIVE: CASE EVENT DATE: 20150213
